FAERS Safety Report 14925739 (Version 2)
Quarter: 2018Q2

REPORT INFORMATION
  Report Type: Report from Study
  Country: JP (occurrence: JP)
  Receive Date: 20180522
  Receipt Date: 20180601
  Transmission Date: 20180711
  Serious: Yes (Other)
  Sender: FDA-Public Use
  Company Number: JP-ROCHE-2127769

PATIENT
  Age: 69 Year
  Sex: Male

DRUGS (2)
  1. ZOLEDRONIC ACID [Suspect]
     Active Substance: ZOLEDRONIC ACID
     Indication: METASTASES TO BONE
     Dosage: BRAND NAME: ZOMETA
     Route: 042
  2. BEVACIZUMAB. [Suspect]
     Active Substance: BEVACIZUMAB
     Indication: LUNG NEOPLASM MALIGNANT
     Route: 041

REACTIONS (4)
  - Osteomyelitis [Unknown]
  - Infection [Unknown]
  - General physical health deterioration [Unknown]
  - Osteonecrosis of jaw [Unknown]
